FAERS Safety Report 6967564-5 (Version None)
Quarter: 2010Q3

REPORT INFORMATION
  Report Type: 
  Country: None (occurrence: None)
  Receive Date: 20100823
  Receipt Date: 20100615
  Transmission Date: 20110219
  Serious: No
  Sender: FDA-Public Use
  Company Number: 014255

PATIENT
  Sex: Female

DRUGS (1)
  1. CIMZIA [Suspect]
     Dosage: (SUBCUTANEOUS)

REACTIONS (3)
  - INJECTION SITE ERYTHEMA [None]
  - OEDEMA PERIPHERAL [None]
  - PRURITUS [None]
